FAERS Safety Report 5315685-5 (Version None)
Quarter: 2007Q2

REPORT INFORMATION
  Report Type: 
  Country: None (occurrence: None)
  Receive Date: 20070503
  Receipt Date: 20070424
  Transmission Date: 20071010
  Serious: Yes (Other)
  Sender: FDA-Public Use
  Company Number: JP-MERCK-0704USA06556

PATIENT
  Age: 89 Year
  Sex: Female

DRUGS (1)
  1. FAMOTIDINE [Suspect]
     Indication: GASTRITIS
     Route: 048
     Dates: start: 20070222, end: 20070226

REACTIONS (2)
  - APHASIA [None]
  - HYPOAESTHESIA [None]
